FAERS Safety Report 8345575-5 (Version None)
Quarter: 2012Q2

REPORT INFORMATION
  Report Type: 
  Country: None (occurrence: None)
  Receive Date: 20120508
  Receipt Date: 20120305
  Transmission Date: 20120825
  Serious: No
  Sender: FDA-Public Use
  Company Number: US-BAUSCH-2012BL001657

PATIENT
  Age: 91 Year
  Sex: Female

DRUGS (3)
  1. ERYTHROCIN 1% [Concomitant]
     Indication: EYELID INFECTION
     Route: 047
  2. ALREX [Suspect]
     Indication: PRODUCT USED FOR UNKNOWN INDICATION
     Route: 047
     Dates: start: 20120217, end: 20120302
  3. MULTIVITAMIN [Concomitant]

REACTIONS (3)
  - CONDITION AGGRAVATED [None]
  - EYELID IRRITATION [None]
  - DRUG HYPERSENSITIVITY [None]
